FAERS Safety Report 8960483 (Version 1)
Quarter: 2012Q4

REPORT INFORMATION
  Report Type: Spontaneous
  Country: GB (occurrence: None)
  Receive Date: 20121203
  Receipt Date: 20121203
  Transmission Date: 20130627
  Serious: Yes (Life-Threatening)
  Sender: FDA-Public Use
  Company Number: 2012MA013670

PATIENT
  Age: 67 Year
  Sex: Female

DRUGS (3)
  1. SERTRALINE HYDROCHLORIDE [Suspect]
     Indication: DEPRESSION
     Route: 048
  2. ACETYLSALICYLIC ACID [Suspect]
     Indication: ST SEGMENT ELEVATION MYOCARDIAL INFARCTION
  3. CLOPIDOGREL [Concomitant]

REACTIONS (3)
  - Angiodysplasia [None]
  - Gastrointestinal haemorrhage [None]
  - Haemoglobin decreased [None]
